FAERS Safety Report 18644838 (Version 1)
Quarter: 2020Q4

REPORT INFORMATION
  Report Type: Spontaneous
  Country: CN (occurrence: CN)
  Receive Date: 20201221
  Receipt Date: 20201221
  Transmission Date: 20210114
  Serious: Yes (Other)
  Sender: FDA-Public Use
  Company Number: CN-PFIZER INC-2020500820

PATIENT
  Age: 77 Year
  Sex: Male
  Weight: 58.9 kg

DRUGS (3)
  1. SODIUM CHLORIDE. [Concomitant]
     Active Substance: SODIUM CHLORIDE
     Indication: VEHICLE SOLUTION USE
     Dosage: 250 ML, 2X/DAY
     Route: 041
     Dates: start: 20201201, end: 20201203
  2. VFEND [Suspect]
     Active Substance: VORICONAZOLE
     Indication: PNEUMONIA FUNGAL
     Dosage: 200 MG, 2X/DAY
     Route: 041
     Dates: start: 20201201, end: 20201204
  3. VFEND [Suspect]
     Active Substance: VORICONAZOLE
     Indication: PNEUMONIA FUNGAL
     Dosage: 0.2 G, 2X/DAY
     Route: 048
     Dates: start: 20201204, end: 20201208

REACTIONS (14)
  - Visual impairment [Unknown]
  - Anal incontinence [Unknown]
  - Tremor [Unknown]
  - Alcohol withdrawal syndrome [Unknown]
  - Hallucination, auditory [Unknown]
  - Mania [Unknown]
  - Hallucination [Unknown]
  - Leukaemia [Unknown]
  - Urinary incontinence [Unknown]
  - Mental disorder [Not Recovered/Not Resolved]
  - Drug level decreased [Unknown]
  - Somnolence [Unknown]
  - Agitation [Unknown]
  - Restlessness [Recovering/Resolving]

NARRATIVE: CASE EVENT DATE: 20201204
